FAERS Safety Report 7358258-5 (Version None)
Quarter: 2011Q1

REPORT INFORMATION
  Report Type: 
  Country: None (occurrence: None)
  Receive Date: 20110314
  Receipt Date: 20110314
  Transmission Date: 20110831
  Serious: No
  Sender: FDA-Public Use
  Company Number: None

PATIENT
  Age: 34 Year
  Sex: Female
  Weight: 65.7716 kg

DRUGS (2)
  1. LYRICA [Suspect]
     Indication: PAIN
     Dates: start: 19870701, end: 20110216
  2. LYRICA [Suspect]
     Indication: MOOD ALTERED
     Dates: start: 19870701, end: 20110216

REACTIONS (11)
  - MEMORY IMPAIRMENT [None]
  - VOMITING [None]
  - RESTLESS LEGS SYNDROME [None]
  - INSOMNIA [None]
  - NIGHTMARE [None]
  - TREMOR [None]
  - HYPERHIDROSIS [None]
  - FEELING ABNORMAL [None]
  - DRUG WITHDRAWAL SYNDROME [None]
  - NAUSEA [None]
  - SUICIDAL IDEATION [None]
